FAERS Safety Report 7656420-5 (Version None)
Quarter: 2011Q3

REPORT INFORMATION
  Report Type: 
  Country: None (occurrence: None)
  Receive Date: 20110804
  Receipt Date: 20110801
  Transmission Date: 20111222
  Serious: Yes (Other)
  Sender: FDA-Public Use
  Company Number: FR-GLAXOSMITHKLINE-B0736223A

PATIENT
  Sex: Male

DRUGS (15)
  1. PRIMPERAN TAB [Suspect]
     Indication: PRODUCT USED FOR UNKNOWN INDICATION
     Dosage: 10MG THREE TIMES PER DAY
     Route: 042
     Dates: start: 20110602
  2. GELOX [Concomitant]
     Dosage: 1UNIT THREE TIMES PER DAY
     Route: 048
     Dates: start: 20110602
  3. CEFTAZIDIME SODIUM [Suspect]
     Indication: INFECTION PROPHYLAXIS
     Dosage: 3G PER DAY
     Route: 042
     Dates: start: 20110602
  4. ZOVIRAX [Suspect]
     Indication: INFECTION PROPHYLAXIS
     Dosage: 250MG TWICE PER DAY
     Route: 042
     Dates: start: 20110602
  5. AMLODIPINE BESYLATE [Concomitant]
     Dosage: 5MG PER DAY
     Route: 048
  6. CELLCEPT [Suspect]
     Indication: STEM CELL TRANSPLANT
     Dosage: 500MG FOUR TIMES PER DAY
     Route: 042
     Dates: start: 20110606
  7. HEPARIN SODIUM [Concomitant]
     Dosage: 24000IU PER DAY
     Route: 042
     Dates: start: 20110601
  8. MYCOSTATIN [Concomitant]
     Dosage: 1UNIT TWICE PER DAY
     Route: 048
     Dates: start: 20110602
  9. ORAL BOWEL DECONTAMINATION SOLUTION [Concomitant]
     Dosage: 2UNIT THREE TIMES PER DAY
  10. CIPROFLOXACIN [Suspect]
     Indication: INFECTION PROPHYLAXIS
     Dosage: 200MG TWICE PER DAY
     Route: 042
     Dates: start: 20110602
  11. CYCLOSPORINE [Suspect]
     Indication: STEM CELL TRANSPLANT
     Dosage: 180MG PER DAY
     Route: 042
     Dates: start: 20110606
  12. OMEPRAZOLE [Concomitant]
     Dosage: 20MG PER DAY
     Route: 042
     Dates: start: 20110602
  13. TRANXENE [Concomitant]
     Dosage: 5MG FOUR TIMES PER DAY
     Route: 042
     Dates: start: 20110602
  14. URSOLVAN [Concomitant]
     Dosage: 600MG TWICE PER DAY
     Route: 048
     Dates: start: 20110603
  15. FLUCONAZOLE [Concomitant]
     Dosage: 200MG PER DAY
     Route: 048
     Dates: start: 20110602

REACTIONS (5)
  - URINARY INCONTINENCE [None]
  - MALAISE [None]
  - PARTIAL SEIZURES [None]
  - VOMITING [None]
  - FAECAL INCONTINENCE [None]
